FAERS Safety Report 8173612-X (Version None)
Quarter: 2012Q1

REPORT INFORMATION
  Report Type: 
  Country: None (occurrence: None)
  Receive Date: 20120224
  Receipt Date: 20120210
  Transmission Date: 20120608
  Serious: Yes (Hospitalization)
  Sender: FDA-Public Use
  Company Number: NES-AE-12-003

PATIENT
  Age: 59 Year
  Sex: Female

DRUGS (15)
  1. BEVACIZUMAB [Suspect]
     Indication: COLORECTAL CANCER
     Dosage: 7.5MG/KG - DAILY - IV
     Route: 042
     Dates: start: 20110107
  2. COMPAZINE [Concomitant]
  3. MICRO-K (POTASSIUM CHLORIDE) [Suspect]
     Indication: PRODUCT USED FOR UNKNOWN INDICATION
     Dates: end: 20120101
  4. EFFEXOR XR [Concomitant]
  5. RANITIDINE HCL [Concomitant]
  6. METOPROLOL TARTRATE [Concomitant]
  7. LISINOPRIL [Suspect]
     Indication: PRODUCT USED FOR UNKNOWN INDICATION
     Dosage: 20MG - DAILY - ORAL
     Route: 048
     Dates: end: 20120101
  8. MAGIC MOUTHWASH [Concomitant]
  9. DOCUSATE SODIUM [Concomitant]
  10. TURNS [Concomitant]
  11. VENLAFAXINE HCL [Concomitant]
  12. ONDANSETRON [Concomitant]
  13. DASATINIB [Suspect]
     Indication: COLORECTAL CANCER
     Dosage: 70MG-DAILY -
     Dates: start: 20110107
  14. CAPECITABINE [Suspect]
     Indication: COLORECTAL CANCER
     Dosage: 1000MG - BID -
     Dates: start: 20110107
  15. MEGACE [Concomitant]

REACTIONS (5)
  - RESPIRATORY DISORDER [None]
  - ANGIOEDEMA [None]
  - HEART RATE INCREASED [None]
  - BLOOD PRESSURE INCREASED [None]
  - RASH MACULAR [None]
